FAERS Safety Report 20910565 (Version 2)
Quarter: 2022Q3

REPORT INFORMATION
  Report Type: Report from Study
  Country: DE (occurrence: DE)
  Receive Date: 20220603
  Receipt Date: 20220718
  Transmission Date: 20221026
  Serious: Yes (Other)
  Sender: FDA-Public Use
  Company Number: DE-TAKEDA-2022TUS036078

PATIENT
  Age: 29 Year
  Sex: Female

DRUGS (14)
  1. TEDUGLUTIDE [Suspect]
     Active Substance: TEDUGLUTIDE
     Indication: Short-bowel syndrome
     Dosage: 2.6 MILLIGRAM, QD
     Route: 042
     Dates: start: 20181024, end: 20181221
  2. TEDUGLUTIDE [Suspect]
     Active Substance: TEDUGLUTIDE
     Indication: Short-bowel syndrome
     Dosage: 2.6 MILLIGRAM, QD
     Route: 042
     Dates: start: 20181024, end: 20181221
  3. TEDUGLUTIDE [Suspect]
     Active Substance: TEDUGLUTIDE
     Indication: Short-bowel syndrome
     Dosage: 2.6 MILLIGRAM, QD
     Route: 042
     Dates: start: 20181024, end: 20181221
  4. TEDUGLUTIDE [Suspect]
     Active Substance: TEDUGLUTIDE
     Indication: Short-bowel syndrome
     Dosage: 2.6 MILLIGRAM, QD
     Route: 042
     Dates: start: 20181024, end: 20181221
  5. PREDNISOLONE [Concomitant]
     Active Substance: PREDNISOLONE
     Indication: Crohn^s disease
     Dosage: 10 MILLIGRAM, QD
     Route: 048
     Dates: start: 20210417, end: 20210615
  6. PREDNISOLONE [Concomitant]
     Active Substance: PREDNISOLONE
     Dosage: 15 MILLIGRAM, QD
     Route: 048
     Dates: start: 20210616, end: 20210706
  7. PREDNISOLONE [Concomitant]
     Active Substance: PREDNISOLONE
     Dosage: 12.5 MILLIGRAM, QD
     Route: 048
     Dates: start: 20210707, end: 20210720
  8. PREDNISOLONE [Concomitant]
     Active Substance: PREDNISOLONE
     Dosage: 10 MILLIGRAM, QD
     Route: 048
     Dates: start: 20210721
  9. EUTHYROX [Concomitant]
     Active Substance: LEVOTHYROXINE SODIUM
     Indication: Autoimmune thyroiditis
     Dosage: 75 UNK, QD
     Route: 048
     Dates: start: 201609
  10. CHOLECALCIFEROL [Concomitant]
     Active Substance: CHOLECALCIFEROL
     Indication: Vitamin D deficiency
     Dosage: 20000 INTERNATIONAL UNIT, QD
     Route: 048
     Dates: start: 20150923
  11. CHOLECALCIFEROL [Concomitant]
     Active Substance: CHOLECALCIFEROL
     Indication: Crohn^s disease
     Dosage: 20000 INTERNATIONAL UNIT, QD
     Route: 048
     Dates: start: 201805
  12. VITAMIN B12 [Concomitant]
     Active Substance: CYANOCOBALAMIN
     Indication: Vitamin B12 deficiency
     Dosage: 1000 MICROGRAM
     Route: 058
     Dates: start: 20171009
  13. USTEKINUMAB [Concomitant]
     Active Substance: USTEKINUMAB
     Indication: Crohn^s disease
     Dosage: 130 MILLIGRAM
     Route: 042
     Dates: start: 20161129
  14. URSODIOL [Concomitant]
     Active Substance: URSODIOL
     Indication: Crohn^s disease
     Dosage: 500 MILLIGRAM, QD
     Route: 048
     Dates: start: 20191115

REACTIONS (2)
  - Crohn^s disease [Recovered/Resolved]
  - Laryngitis [Recovered/Resolved]

NARRATIVE: CASE EVENT DATE: 20220101
